FAERS Safety Report 14626270 (Version 1)
Quarter: 2018Q1

REPORT INFORMATION
  Report Type: Spontaneous
  Country: FR (occurrence: FR)
  Receive Date: 20180312
  Receipt Date: 20180312
  Transmission Date: 20180509
  Serious: Yes (Life-Threatening)
  Sender: FDA-Public Use
  Company Number: FR-SA-2018SA065602

PATIENT
  Age: 63 Year
  Sex: Female
  Weight: 85.7 kg

DRUGS (11)
  1. LEVOTHYROX [Concomitant]
     Active Substance: LEVOTHYROXINE
  2. PREVISCAN (FLUINDIONE) [Suspect]
     Active Substance: FLUINDIONE
     Indication: THROMBOSIS
     Route: 048
     Dates: end: 20180212
  3. INEXIUM [Concomitant]
     Active Substance: ESOMEPRAZOLE
  4. BISOCE [Concomitant]
     Active Substance: BISOPROLOL
  5. CALCIDOSE [Concomitant]
     Active Substance: CALCIUM CARBONATE
  6. ZYMAD [Concomitant]
     Active Substance: CHOLECALCIFEROL
  7. LOVENOX [Suspect]
     Active Substance: ENOXAPARIN SODIUM
     Indication: THROMBOSIS
     Route: 058
     Dates: start: 20180212
  8. HYDROCORTISONE. [Concomitant]
     Active Substance: HYDROCORTISONE
  9. CRESTOR [Concomitant]
     Active Substance: ROSUVASTATIN CALCIUM
  10. FUROSEMIDE. [Concomitant]
     Active Substance: FUROSEMIDE
  11. KARDEGIC [Suspect]
     Active Substance: ASPIRIN DL-LYSINE
     Indication: ACUTE CORONARY SYNDROME
     Route: 065

REACTIONS (4)
  - Acute kidney injury [Recovering/Resolving]
  - Abdominal wall haematoma [Not Recovered/Not Resolved]
  - Anaemia [Recovering/Resolving]
  - Shock haemorrhagic [Recovered/Resolved]

NARRATIVE: CASE EVENT DATE: 20180213
